FAERS Safety Report 9335413 (Version 1)
Quarter: 2013Q2

REPORT INFORMATION
  Report Type: Spontaneous
  Country: US (occurrence: US)
  Receive Date: 20130606
  Receipt Date: 20130606
  Transmission Date: 20140414
  Serious: No
  Sender: FDA-Public Use
  Company Number: US-009507513-1305USA014874

PATIENT
  Age: 60 Year
  Sex: Female

DRUGS (4)
  1. SINGULAIR [Suspect]
     Indication: URTICARIA
     Dosage: 10 MG/ONCE DAILY
     Route: 048
     Dates: start: 20100807
  2. MONTELUKAST SODIUM [Suspect]
     Route: 048
  3. ZYRTEC [Concomitant]
  4. RANITIDINE [Concomitant]

REACTIONS (10)
  - Eye swelling [Not Recovered/Not Resolved]
  - Eating disorder [Not Recovered/Not Resolved]
  - Gait disturbance [Not Recovered/Not Resolved]
  - Lip swelling [Not Recovered/Not Resolved]
  - Stomatitis [Not Recovered/Not Resolved]
  - Swollen tongue [Not Recovered/Not Resolved]
  - Dysphagia [Not Recovered/Not Resolved]
  - Adverse event [Not Recovered/Not Resolved]
  - Drug ineffective [Unknown]
  - Drug ineffective [Unknown]
